FAERS Safety Report 9263703 (Version 10)
Quarter: 2013Q3

REPORT INFORMATION
  Report Type: Spontaneous
  Country: IE (occurrence: IE)
  Receive Date: 20130430
  Receipt Date: 20130826
  Transmission Date: 20140515
  Serious: Yes (Hospitalization, Other)
  Sender: FDA-Public Use
  Company Number: PHFR2013IE002463

PATIENT
  Age: 55 Year
  Sex: Female

DRUGS (5)
  1. CLOZARIL [Suspect]
     Indication: SCHIZOPHRENIA
     Dosage: UNK
     Dates: start: 19950313
  2. CLOZARIL [Suspect]
     Dosage: UNK
     Route: 048
     Dates: start: 20010701
  3. CLOZARIL [Suspect]
     Dosage: (200 MG + 300 MG)
     Route: 048
     Dates: start: 20130423
  4. CLOZARIL [Suspect]
     Dosage: 500MG
     Route: 048
     Dates: start: 20130515
  5. CHLORPROMAZINE [Concomitant]
     Dosage: (200 MG MANE + 300 MG NOCTE)

REACTIONS (4)
  - Lung neoplasm malignant [Unknown]
  - B-cell lymphoma [Unknown]
  - White blood cell count decreased [Not Recovered/Not Resolved]
  - Lymphocyte count decreased [Unknown]
